FAERS Safety Report 15107211 (Version 12)
Quarter: 2020Q4

REPORT INFORMATION
  Report Type: Spontaneous
  Country: US (occurrence: US)
  Receive Date: 20180704
  Receipt Date: 20201123
  Transmission Date: 20210113
  Serious: No
  Sender: FDA-Public Use
  Company Number: US-PFIZER INC-2018269912

PATIENT
  Age: 77 Year
  Sex: Female
  Weight: 75 kg

DRUGS (5)
  1. IBRANCE [Suspect]
     Active Substance: PALBOCICLIB
     Indication: BREAST CANCER METASTATIC
     Dosage: 125 MG, CYCLIC (ONCE DAILY FOR 21 DAYS/3 WEEKS ON AND ONE WEEK OFF)
     Route: 048
     Dates: start: 201705, end: 201705
  2. IBRANCE [Suspect]
     Active Substance: PALBOCICLIB
     Dosage: 100 MG, 1X/DAY
     Dates: start: 201705
  3. IBRANCE [Suspect]
     Active Substance: PALBOCICLIB
     Dosage: 100 MG, CYCLIC, [DAILY FOR 2 WEEKS ON, 2 WEEKS OFF, EVERY 28 DAYS]
     Route: 048
  4. IBRANCE [Suspect]
     Active Substance: PALBOCICLIB
     Dosage: UNK, CYCLIC ( (IBRANCE TWO WEEKS ON TWO WEEKS OFF))
     Route: 048
  5. LETROZOLE. [Concomitant]
     Active Substance: LETROZOLE
     Indication: NEOPLASM MALIGNANT
     Dosage: 2.5 MG, 1X/DAY
     Route: 048
     Dates: start: 201703

REACTIONS (5)
  - Intentional product misuse [Unknown]
  - Tongue disorder [Not Recovered/Not Resolved]
  - Stomatitis [Unknown]
  - Decreased appetite [Recovering/Resolving]
  - Listless [Unknown]

NARRATIVE: CASE EVENT DATE: 201705
